FAERS Safety Report 8530791 (Version 4)
Quarter: 2013Q4

REPORT INFORMATION
  Report Type: Spontaneous
  Country: US (occurrence: US)
  Receive Date: 20120425
  Receipt Date: 20131106
  Transmission Date: 20140711
  Serious: Yes (Death, Hospitalization, Other)
  Sender: FDA-Public Use
  Company Number: US-009507513-1204USA02998

PATIENT
  Sex: Male
  Weight: 64.41 kg

DRUGS (5)
  1. JANUVIA [Suspect]
     Indication: DIABETES MELLITUS
     Dosage: 50 MG, QD
     Route: 048
     Dates: start: 2011
  2. NORVASC [Suspect]
     Indication: HYPERTENSION
     Dosage: 10 MG, BID
     Route: 048
  3. NEURONTIN [Suspect]
     Dosage: 600 MG, BID
     Dates: start: 201101
  4. GLUCOTROL [Suspect]
     Indication: HERPES ZOSTER
     Dosage: 10 MG, BID
     Route: 048
  5. FENTANYL [Suspect]
     Indication: NEUROPATHY PERIPHERAL
     Dosage: PATCH /EVERY 72 HOURS
     Dates: start: 2011

REACTIONS (5)
  - Sepsis [Fatal]
  - Malaise [Recovering/Resolving]
  - Myocardial infarction [Fatal]
  - Renal failure acute [Fatal]
  - Urinary tract infection [Fatal]
